FAERS Safety Report 7559799-8 (Version None)
Quarter: 2011Q2

REPORT INFORMATION
  Report Type: 
  Country: None (occurrence: None)
  Receive Date: 20110617
  Receipt Date: 20110617
  Transmission Date: 20111010
  Serious: Yes (Other)
  Sender: FDA-Public Use
  Company Number: None

PATIENT
  Age: 76 Year
  Sex: Male

DRUGS (1)
  1. DORZOLAMIDE HYDROCHLORIDE AND TIMOLOL MALEATE [Suspect]
     Indication: OPEN ANGLE GLAUCOMA
     Dosage: ONE DROP BID TOP
     Route: 061
     Dates: start: 20110418, end: 20110613

REACTIONS (3)
  - IRITIS [None]
  - POST PROCEDURAL COMPLICATION [None]
  - PRODUCT SUBSTITUTION ISSUE [None]
